FAERS Safety Report 24646447 (Version 1)
Quarter: 2024Q4

REPORT INFORMATION
  Report Type: Spontaneous
  Country: GB (occurrence: GB)
  Receive Date: 20241121
  Receipt Date: 20241121
  Transmission Date: 20250115
  Serious: Yes (Hospitalization, Other)
  Sender: ORGANON
  Company Number: None

PATIENT
  Age: 5 Year
  Sex: Female
  Weight: 50 kg

DRUGS (1)
  1. SINGULAIR [Suspect]
     Active Substance: MONTELUKAST SODIUM
     Indication: Hypersensitivity
     Dosage: UNK

REACTIONS (4)
  - Aggression [Recovering/Resolving]
  - Suicidal ideation [Recovering/Resolving]
  - Obsessive thoughts [Recovering/Resolving]
  - Agitation [Not Recovered/Not Resolved]
